FAERS Safety Report 10581572 (Version 2)
Quarter: 2014Q4

REPORT INFORMATION
  Report Type: Spontaneous
  Country: US (occurrence: None)
  Receive Date: 20141110
  Receipt Date: 20141224
  Transmission Date: 20150529
  Serious: Yes (Other)
  Sender: FDA-Public Use
  Company Number: 2014-20677

PATIENT
  Age: 84 Year
  Sex: Male

DRUGS (4)
  1. VISINE (TETRYZOLINE HYDROCHLORIDE) [Concomitant]
  2. OCUVITE (ASCORBIC ACID, RETINOL, TOCOPHEROL) [Concomitant]
  3. EYLEA [Suspect]
     Active Substance: AFLIBERCEPT
     Indication: AGE-RELATED MACULAR DEGENERATION
     Dosage: 2 MG, INTRAVITREAL, BETWEEN 2 AND 3 MONTHS, INTRAOCULAR
     Route: 031
     Dates: start: 20130122
  4. CIPROFLOXACIN. [Concomitant]
     Active Substance: CIPROFLOXACIN

REACTIONS (2)
  - Bladder cancer [None]
  - Chest pain [None]

NARRATIVE: CASE EVENT DATE: 20141027
